FAERS Safety Report 10452413 (Version 1)
Quarter: 2014Q3

REPORT INFORMATION
  Report Type: Report from Study
  Country: IR (occurrence: IR)
  Receive Date: 20140915
  Receipt Date: 20140915
  Transmission Date: 20150326
  Serious: Yes (Other)
  Sender: FDA-Public Use
  Company Number: IR-BAYER-2014-132628

PATIENT

DRUGS (2)
  1. CITALOPRAM [Suspect]
     Active Substance: CITALOPRAM HYDROBROMIDE
     Indication: MAJOR DEPRESSION
     Dosage: 10 MG/DAY AND TITRATED TO 20MG/DAY OVER 4 DAYS
  2. ASPIRIN. [Suspect]
     Active Substance: ASPIRIN
     Indication: MAJOR DEPRESSION
     Dosage: 160 MG, DAILY

REACTIONS (5)
  - Palpitations [None]
  - Drug interaction [None]
  - Anxiety [None]
  - Depression [None]
  - Diarrhoea [None]
